FAERS Safety Report 13885546 (Version 1)
Quarter: 2017Q3

REPORT INFORMATION
  Report Type: Spontaneous
  Country: FR (occurrence: FR)
  Receive Date: 20170821
  Receipt Date: 20170821
  Transmission Date: 20171127
  Serious: Yes (Other)
  Sender: FDA-Public Use
  Company Number: FR-PFIZER INC-2017355650

PATIENT
  Age: 75 Year
  Sex: Male

DRUGS (5)
  1. ATRACURIUM BESILATE [Suspect]
     Active Substance: ATRACURIUM BESYLATE
     Indication: ANAESTHESIA
     Dosage: UNK
     Route: 042
     Dates: start: 20170726, end: 20170726
  2. DIPRIVAN [Concomitant]
     Active Substance: PROPOFOL
     Indication: INDUCTION OF ANAESTHESIA
     Dosage: UNK
     Dates: start: 20170726, end: 20170726
  3. GABAPENTIN. [Concomitant]
     Active Substance: GABAPENTIN
     Indication: PREMEDICATION
     Dosage: 600 MG, SINGLE
     Route: 048
     Dates: start: 20170726, end: 20170726
  4. SUFENTA [Concomitant]
     Active Substance: SUFENTANIL CITRATE
     Indication: INDUCTION OF ANAESTHESIA
     Dosage: UNK
     Dates: start: 20170726, end: 20170726
  5. RANIPLEX /00550801/ [Concomitant]
     Active Substance: RANITIDINE HYDROCHLORIDE
     Indication: PREMEDICATION
     Dosage: 600 MG, SINGLE
     Route: 048
     Dates: start: 20170726, end: 20170726

REACTIONS (3)
  - Oxygen saturation decreased [Unknown]
  - Bronchospasm [Recovered/Resolved]
  - Rash [Recovered/Resolved]

NARRATIVE: CASE EVENT DATE: 20170726
